FAERS Safety Report 5910463-8 (Version None)
Quarter: 2008Q4

REPORT INFORMATION
  Report Type: 
  Country: None (occurrence: None)
  Receive Date: 20081007
  Receipt Date: 20080924
  Transmission Date: 20090506
  Serious: Yes (Hospitalization)
  Sender: FDA-Public Use
  Company Number: AU-TEVA-178175ISR

PATIENT
  Sex: Female

DRUGS (5)
  1. COPAXONE [Suspect]
     Indication: RELAPSING-REMITTING MULTIPLE SCLEROSIS
     Route: 058
     Dates: start: 20010101
  2. ANTIBIOTICS [Concomitant]
  3. NAPROSYN [Concomitant]
     Indication: PAIN
  4. ACETAMINOPHEN W/ CODEINE [Concomitant]
     Indication: PAIN
  5. DEPO-PROVERA [Concomitant]
     Indication: CONTRACEPTION

REACTIONS (1)
  - INTRA-ABDOMINAL HAEMATOMA [None]
